FAERS Safety Report 6733032-9 (Version None)
Quarter: 2010Q2

REPORT INFORMATION
  Report Type: 
  Country: None (occurrence: None)
  Receive Date: 20100517
  Receipt Date: 20100426
  Transmission Date: 20101027
  Serious: Yes (Hospitalization, Other)
  Sender: FDA-Public Use
  Company Number: JPI-P-010614

PATIENT
  Age: 80 Year
  Sex: Male

DRUGS (4)
  1. XYREM [Suspect]
     Indication: NARCOLEPSY
     Dosage: 2GM (1GM, 2 IN 1D), ORAL
     Route: 048
     Dates: start: 20061218, end: 20061220
  2. BISOPROLOL [Concomitant]
  3. ACETYLSALICYLATE LYSINE [Concomitant]
  4. ATORVASTATIN [Concomitant]

REACTIONS (6)
  - GRAND MAL CONVULSION [None]
  - HYPERTENSIVE CRISIS [None]
  - ISCHAEMIC STROKE [None]
  - LEUKOENCEPHALOPATHY [None]
  - PULMONARY ARTERIAL HYPERTENSION [None]
  - STATUS EPILEPTICUS [None]
